FAERS Safety Report 12280891 (Version 2)
Quarter: 2016Q2

REPORT INFORMATION
  Report Type: Report from Study
  Country: CN (occurrence: CN)
  Receive Date: 20160419
  Receipt Date: 20160524
  Transmission Date: 20160815
  Serious: Yes (Death)
  Sender: FDA-Public Use
  Company Number: CN-ASTELLAS-2016US014759

PATIENT
  Age: 51 Year
  Sex: Female
  Weight: 44 kg

DRUGS (15)
  1. TACROLIMUS. [Suspect]
     Active Substance: TACROLIMUS
     Dosage: 3 MG, EVERY 12 HOURS
     Route: 048
     Dates: start: 20151214, end: 20151219
  2. MYCOPHENOLATE [Suspect]
     Active Substance: MYCOPHENOLIC ACID
     Dosage: 0.5 G, ONCE DAILY
     Route: 048
     Dates: start: 20160106, end: 20160110
  3. NIFEDIPINE. [Concomitant]
     Active Substance: NIFEDIPINE
     Indication: BLOOD PRESSURE INCREASED
     Route: 048
     Dates: start: 20151214, end: 20151215
  4. TACROLIMUS. [Suspect]
     Active Substance: TACROLIMUS
     Indication: PROPHYLAXIS
     Dosage: 1.5 MG, ST
     Route: 048
     Dates: start: 20151213, end: 20151213
  5. ATG-FRESENIUS [Suspect]
     Active Substance: LAPINE T-LYMPHOCYTE IMMUNE GLOBULIN
     Indication: PROPHYLAXIS
     Route: 050
     Dates: start: 20151213, end: 20151216
  6. MYCOPHENOLATE [Suspect]
     Active Substance: MYCOPHENOLIC ACID
     Dosage: 1.0 G, TWICE DAILY
     Route: 048
     Dates: start: 20151227, end: 20160102
  7. TACROLIMUS. [Suspect]
     Active Substance: TACROLIMUS
     Dosage: 2 MG, TWICE DAILY
     Route: 048
     Dates: start: 20151220, end: 20151222
  8. TACROLIMUS. [Suspect]
     Active Substance: TACROLIMUS
     Dosage: 1 MG, TWICE DAILY
     Route: 048
     Dates: start: 20151223, end: 20151223
  9. MYCOPHENOLATE [Suspect]
     Active Substance: MYCOPHENOLIC ACID
     Dosage: 0.5 G, ONCE DAILY
     Route: 045
     Dates: start: 20160103, end: 20160105
  10. MYCOPHENOLATE [Suspect]
     Active Substance: MYCOPHENOLIC ACID
     Dosage: 1.5 G, EVERY 12 HOURS
     Route: 048
     Dates: start: 20151214, end: 20151219
  11. PREDNISONE ACETATE [Concomitant]
     Active Substance: PREDNISONE ACETATE
     Indication: ALLERGY PROPHYLAXIS
     Route: 048
     Dates: start: 20151217, end: 20151223
  12. PANTOPRAZOLE SODIUM. [Concomitant]
     Active Substance: PANTOPRAZOLE SODIUM
     Indication: STRESS ULCER
     Route: 050
     Dates: start: 20151217, end: 20151221
  13. MYCOPHENOLATE [Suspect]
     Active Substance: MYCOPHENOLIC ACID
     Indication: PROPHYLAXIS
     Dosage: 0.75 G, ST
     Route: 048
     Dates: start: 20151213, end: 20151213
  14. MYCOPHENOLATE [Suspect]
     Active Substance: MYCOPHENOLIC ACID
     Dosage: 1.0 G, TWICE DAILY
     Route: 048
     Dates: start: 20151220, end: 20151223
  15. MYCOPHENOLATE [Suspect]
     Active Substance: MYCOPHENOLIC ACID
     Dosage: 0.75 G, ONCE DAILY
     Route: 048
     Dates: start: 20151224, end: 20151226

REACTIONS (1)
  - Multiple organ dysfunction syndrome [Fatal]

NARRATIVE: CASE EVENT DATE: 20160110
